FAERS Safety Report 4291491-8 (Version None)
Quarter: 2004Q1

REPORT INFORMATION
  Report Type: 
  Country: None (occurrence: None)
  Receive Date: 20040211
  Receipt Date: 20030210
  Transmission Date: 20041129
  Serious: No
  Sender: FDA-Public Use
  Company Number: US-BRISTOL-MYERS SQUIBB COMPANY-12181319

PATIENT
  Age: 2 Year
  Sex: Male
  Weight: 12 kg

DRUGS (1)
  1. CEFZIL [Suspect]
     Indication: EAR INFECTION
     Dosage: THE REPORTED DOSE WAS 3/4 TEASPOON.
     Route: 048
     Dates: start: 20030206, end: 20030207

REACTIONS (1)
  - VOMITING [None]
